FAERS Safety Report 8490539-4 (Version None)
Quarter: 2012Q3

REPORT INFORMATION
  Report Type: 
  Country: None (occurrence: None)
  Receive Date: 20120705
  Receipt Date: 20120621
  Transmission Date: 20120928
  Serious: No
  Sender: FDA-Public Use
  Company Number: US-ASTRAZENECA-2012SE41842

PATIENT
  Age: 63 Year
  Sex: Female
  Weight: 40.8 kg

DRUGS (2)
  1. SYMBICORT [Suspect]
     Dosage: 160 MCG TWO PUFFS DAILY
     Route: 055
     Dates: start: 20120523
  2. SYMBICORT [Suspect]
     Dosage: 160 MCG TWO PUFFS TWO TIMES A DAY
     Route: 055
     Dates: end: 20120522

REACTIONS (3)
  - BRONCHITIS [None]
  - EMPHYSEMA [None]
  - INTENTIONAL DRUG MISUSE [None]
